FAERS Safety Report 11971522 (Version 1)
Quarter: 2016Q1

REPORT INFORMATION
  Report Type: Spontaneous
  Country: US (occurrence: US)
  Receive Date: 20160128
  Receipt Date: 20160128
  Transmission Date: 20160526
  Serious: Yes (Death)
  Sender: FDA-Public Use
  Company Number: US-LPDUSPRD-20160041

PATIENT
  Age: 54 Year
  Sex: Male
  Weight: 128 kg

DRUGS (4)
  1. OLANZAPINE FOR INJECTION (0517-0955-01) [Suspect]
     Active Substance: OLANZAPINE
     Dosage: DOSE UNKNOWN
     Route: 065
  2. LORAZEPAM. [Suspect]
     Active Substance: LORAZEPAM
     Dosage: DOSE UNKNOWN
     Route: 065
  3. HYDROXYZINE HCL [Suspect]
     Active Substance: HYDROXYZINE HYDROCHLORIDE
     Dosage: DOSE UNKNOWN
     Route: 065
  4. VENLAFAXINE [Suspect]
     Active Substance: VENLAFAXINE HYDROCHLORIDE
     Dosage: DOSE NOT PROVIDED
     Route: 065

REACTIONS (1)
  - Toxicity to various agents [Fatal]

NARRATIVE: CASE EVENT DATE: 20141231
